FAERS Safety Report 8818638 (Version 1)
Quarter: 2012Q4

REPORT INFORMATION
  Report Type: 
  Country: US (occurrence: US)
  Receive Date: 20121001
  Receipt Date: 20121001
  Transmission Date: 20130627
  Serious: Yes (Death, Other)
  Sender: FDA-Public Use
  Company Number: US-ROCHE-1130214

PATIENT
  Sex: Male

DRUGS (3)
  1. HERCEPTIN [Suspect]
     Indication: COLON CANCER
     Route: 065
  2. XELODA [Suspect]
     Indication: COLON CANCER
     Route: 065
  3. OXALIPLATIN [Concomitant]
     Indication: COLON CANCER

REACTIONS (2)
  - Death [Fatal]
  - Metastases to liver [Unknown]
